FAERS Safety Report 9916153 (Version 3)
Quarter: 2014Q1

REPORT INFORMATION
  Report Type: Spontaneous
  Country: JP (occurrence: None)
  Receive Date: 20140219
  Receipt Date: 20140313
  Transmission Date: 20141002
  Serious: Yes (Hospitalization, Other)
  Sender: FDA-Public Use
  Company Number: ADR-2014-00254

PATIENT
  Age: 14 Year
  Sex: Male

DRUGS (1)
  1. GABALON INTRATHECAL [Suspect]
     Dosage: 110 MCG/DAY, INTRATHECAL.
     Route: 037

REACTIONS (8)
  - Staphylococcal infection [None]
  - Implant site infection [None]
  - Implant site extravasation [None]
  - Implant site swelling [None]
  - Dermatitis atopic [None]
  - Disease complication [None]
  - Wound infection [None]
  - Implant site infection [None]
